FAERS Safety Report 23551395 (Version 3)
Quarter: 2024Q1

REPORT INFORMATION
  Report Type: Report from Study
  Country: US (occurrence: US)
  Receive Date: 20240222
  Receipt Date: 20240322
  Transmission Date: 20240409
  Serious: Yes (Hospitalization, Other)
  Sender: FDA-Public Use
  Company Number: US-ABBVIE-5633973

PATIENT
  Sex: Female
  Weight: 58.059 kg

DRUGS (3)
  1. SKYRIZI [Suspect]
     Active Substance: RISANKIZUMAB-RZAA
     Indication: Psoriasis
     Dosage: ON SKYRIZI FOR THREE YEARS
     Route: 058
  2. SKYRIZI [Suspect]
     Active Substance: RISANKIZUMAB-RZAA
     Dosage: FIRST ADMIN DATE: 04 JAN 2024
     Route: 058
  3. METFORMIN [Suspect]
     Active Substance: METFORMIN HYDROCHLORIDE
     Indication: Product used for unknown indication
     Route: 065

REACTIONS (11)
  - Cardiac arrest [Unknown]
  - Hyperglycaemia [Recovered/Resolved]
  - Extubation [Unknown]
  - Acute kidney injury [Unknown]
  - Mechanical ventilation [Unknown]
  - Haematemesis [Unknown]
  - Drug ineffective [Unknown]
  - Acidosis [Unknown]
  - Gastrointestinal inflammation [Unknown]
  - Adverse drug reaction [Recovered/Resolved]
  - Sepsis [Unknown]
